FAERS Safety Report 4646448-1 (Version None)
Quarter: 2005Q2

REPORT INFORMATION
  Report Type: 
  Country: None (occurrence: None)
  Receive Date: 20050427
  Receipt Date: 20040303
  Transmission Date: 20051028
  Serious: No
  Sender: FDA-Public Use
  Company Number: US-GLAXOSMITHKLINE-A0501068A

PATIENT
  Age: 77 Year

DRUGS (3)
  1. FLOVENT [Suspect]
     Indication: ASTHMA
     Dosage: 220MCG TWICE PER DAY
     Route: 055
     Dates: start: 20040104
  2. SEREVENT [Concomitant]
  3. AZMACORT [Concomitant]

REACTIONS (1)
  - ORAL FUNGAL INFECTION [None]
